FAERS Safety Report 15564625 (Version 2)
Quarter: 2018Q4

REPORT INFORMATION
  Report Type: Spontaneous
  Country: IE (occurrence: IE)
  Receive Date: 20181030
  Receipt Date: 20181122
  Transmission Date: 20190205
  Serious: Yes (Other)
  Sender: FDA-Public Use
  Company Number: IE-009507513-1810IRL013061

PATIENT
  Age: 35 Year
  Sex: Female
  Weight: 170 kg

DRUGS (4)
  1. CUBICIN [Suspect]
     Active Substance: DAPTOMYCIN
     Dosage: 1.2 GRAM, QD (7 MILLIGRAM/KILOGRAM)
     Dates: start: 20181017, end: 20181020
  2. CUBICIN [Suspect]
     Active Substance: DAPTOMYCIN
     Indication: SEPSIS
     Dosage: 1 GRAM, QD (6 MILLIGRAM/KILOGRAM DOSE)
     Route: 042
     Dates: start: 20181010, end: 20181016
  3. FLUCONAZOLE. [Concomitant]
     Active Substance: FLUCONAZOLE
     Indication: DEBRIDEMENT
  4. FLUCONAZOLE. [Concomitant]
     Active Substance: FLUCONAZOLE
     Indication: CANDIDA INFECTION
     Dosage: 800 MILLIGRAM, QD
     Route: 042
     Dates: start: 20181012

REACTIONS (1)
  - Drug level above therapeutic [Unknown]

NARRATIVE: CASE EVENT DATE: 20181018
